FAERS Safety Report 6115184-7 (Version None)
Quarter: 2009Q1

REPORT INFORMATION
  Report Type: 
  Country: None (occurrence: None)
  Receive Date: 20090313
  Receipt Date: 20090303
  Transmission Date: 20090719
  Serious: Yes (Other)
  Sender: FDA-Public Use
  Company Number: BR-AVENTIS-200911110EU

PATIENT
  Sex: Female
  Weight: 50 kg

DRUGS (2)
  1. HIDANTAL [Suspect]
     Indication: SURGERY
     Dosage: DOSE: 1 TABLET
     Route: 048
     Dates: start: 19930101
  2. LANTUS [Suspect]
     Dosage: DOSE: NO FIXED DOSE (DEPENDING ON GLYCEMIA)
     Route: 058

REACTIONS (3)
  - CHEST PAIN [None]
  - LOSS OF CONSCIOUSNESS [None]
  - THERAPEUTIC RESPONSE UNEXPECTED [None]
